FAERS Safety Report 7154108-0 (Version None)
Quarter: 2010Q4

REPORT INFORMATION
  Report Type: 
  Country: None (occurrence: None)
  Receive Date: 20101213
  Receipt Date: 20101203
  Transmission Date: 20110411
  Serious: Yes (Hospitalization)
  Sender: FDA-Public Use
  Company Number: US-SANOFI-AVENTIS-2010SA055356

PATIENT
  Age: 73 Year
  Sex: Male
  Weight: 118 kg

DRUGS (4)
  1. LANTUS [Suspect]
     Dosage: DOSE:42 UNIT(S)
     Route: 058
     Dates: start: 19950101
  2. OPTICLICK [Suspect]
     Route: 058
  3. HUMALOG [Concomitant]
     Indication: TYPE 2 DIABETES MELLITUS
     Dosage: 4 UNITS AND 22 UNITS DOSE:4 UNIT(S)
  4. HUMULIN R [Concomitant]
     Dosage: DOSE:42 UNIT(S)

REACTIONS (3)
  - DECUBITUS ULCER [None]
  - FALL [None]
  - HIP FRACTURE [None]
